FAERS Safety Report 9371788 (Version 1)
Quarter: 2013Q2

REPORT INFORMATION
  Report Type: Spontaneous
  Country: AU (occurrence: AU)
  Receive Date: 20130627
  Receipt Date: 20130627
  Transmission Date: 20140414
  Serious: Yes (Hospitalization)
  Sender: FDA-Public Use
  Company Number: AU-SP-2013-07198

PATIENT
  Age: 40 Year
  Sex: Female

DRUGS (2)
  1. IMOGAM RABIES PASTEURIZED [Suspect]
     Indication: IMMUNISATION
     Route: 065
     Dates: start: 20130211, end: 20130211
  2. MERIEUX INACTIVATED RABIES VACCINE 2.5 IU [Suspect]
     Indication: IMMUNISATION
     Route: 065
     Dates: start: 20130211, end: 20130225

REACTIONS (4)
  - Lethargy [Recovered/Resolved]
  - Myalgia [Recovered/Resolved]
  - Headache [Recovered/Resolved]
  - Nausea [Recovered/Resolved]
